FAERS Safety Report 20078238 (Version 1)
Quarter: 2021Q4

REPORT INFORMATION
  Report Type: Spontaneous
  Country: NL (occurrence: NL)
  Receive Date: 20211117
  Receipt Date: 20211117
  Transmission Date: 20220303
  Serious: Yes (Other)
  Sender: FDA-Public Use
  Company Number: NL-ABBVIE-21K-114-4163753-00

PATIENT
  Sex: Male
  Weight: 90 kg

DRUGS (1)
  1. VALPROATE SODIUM [Suspect]
     Active Substance: VALPROATE SODIUM
     Indication: Epilepsy
     Dosage: 3 A DAY, IN THE MORNING AND 2 IN THE EVENING
     Route: 065
     Dates: start: 1992

REACTIONS (1)
  - Schizophrenia [Not Recovered/Not Resolved]
